FAERS Safety Report 7597872-9 (Version None)
Quarter: 2011Q3

REPORT INFORMATION
  Report Type: 
  Country: None (occurrence: None)
  Receive Date: 20110708
  Receipt Date: 20110629
  Transmission Date: 20111222
  Serious: Yes (Hospitalization, Disabling, Other)
  Sender: FDA-Public Use
  Company Number: US-MERCK-1008USA03507

PATIENT
  Age: 64 Year
  Sex: Female

DRUGS (2)
  1. FOSAMAX [Suspect]
     Indication: PROPHYLAXIS
     Route: 048
     Dates: end: 20070101
  2. FOSAMAX [Suspect]
     Indication: OSTEOPENIA
     Route: 048
     Dates: end: 20070101

REACTIONS (14)
  - BACK INJURY [None]
  - TOOTH DISORDER [None]
  - ORAL DISORDER [None]
  - DENTAL CARIES [None]
  - DEVICE FAILURE [None]
  - GINGIVAL DISORDER [None]
  - HYPERTENSION [None]
  - IMPAIRED HEALING [None]
  - BLOOD CHOLESTEROL INCREASED [None]
  - ORAL INFECTION [None]
  - OSTEONECROSIS OF JAW [None]
  - PERIODONTAL DISEASE [None]
  - GINGIVITIS [None]
  - GINGIVAL BLEEDING [None]
